FAERS Safety Report 25948722 (Version 1)
Quarter: 2025Q4

REPORT INFORMATION
  Report Type: Spontaneous
  Country: US (occurrence: US)
  Receive Date: 20251022
  Receipt Date: 20251022
  Transmission Date: 20260118
  Serious: No
  Sender: BRISTOL-MYERS SQUIBB COMPANY
  Company Number: US-BRISTOL-MYERS SQUIBB COMPANY-2025-143833

PATIENT
  Age: 71 Year
  Sex: Male
  Weight: 43 kg

DRUGS (1)
  1. OPDIVO QVANTIG [Suspect]
     Active Substance: HYALURONIDASE-NVHY\NIVOLUMAB
     Indication: Product used for unknown indication
     Dosage: STRENGTH:  600 MG/10000 UNITS VIAL

REACTIONS (1)
  - Product preparation issue [Unknown]

NARRATIVE: CASE EVENT DATE: 20251021
